FAERS Safety Report 16157749 (Version 2)
Quarter: 2019Q2

REPORT INFORMATION
  Report Type: Spontaneous
  Country: US (occurrence: US)
  Receive Date: 20190404
  Receipt Date: 20190425
  Transmission Date: 20190711
  Serious: Yes (Hospitalization, Other)
  Sender: FDA-Public Use
  Company Number: US-009507513-1904USA001256

PATIENT
  Age: 72 Year
  Sex: Female
  Weight: 47.63 kg

DRUGS (1)
  1. KEYTRUDA [Suspect]
     Active Substance: PEMBROLIZUMAB
     Indication: NON-SMALL CELL LUNG CANCER
     Dosage: 200 MILLIGRAM, EVERY 3 WEEKS
     Route: 042
     Dates: start: 20180724, end: 20190219

REACTIONS (10)
  - Acute myocardial infarction [Unknown]
  - Aortic valve incompetence [Unknown]
  - Tricuspid valve incompetence [Unknown]
  - Left ventricular dysfunction [Unknown]
  - Cardiomyopathy [Recovering/Resolving]
  - Aortic arteriosclerosis [Unknown]
  - Cardiac failure congestive [Unknown]
  - Cardiomegaly [Unknown]
  - Sinus tachycardia [Unknown]
  - Myocarditis [Unknown]

NARRATIVE: CASE EVENT DATE: 201903
